FAERS Safety Report 6336520-2 (Version None)
Quarter: 2009Q3

REPORT INFORMATION
  Report Type: 
  Country: None (occurrence: None)
  Receive Date: 20090901
  Receipt Date: 20090826
  Transmission Date: 20100115
  Serious: Yes (Other)
  Sender: FDA-Public Use
  Company Number: SG-ROCHE-650227

PATIENT
  Age: 8 Year
  Sex: Female

DRUGS (2)
  1. TAMIFLU [Suspect]
     Indication: INFLUENZA
     Route: 048
  2. PARACETAMOL [Concomitant]
     Route: 065

REACTIONS (1)
  - ABNORMAL BEHAVIOUR [None]
